FAERS Safety Report 25330817 (Version 3)
Quarter: 2025Q4

REPORT INFORMATION
  Report Type: Spontaneous
  Country: CA (occurrence: CA)
  Receive Date: 20250519
  Receipt Date: 20251001
  Transmission Date: 20260117
  Serious: Yes (Other)
  Sender: BRACCO
  Company Number: CA-BRACCO-2025CA03049

PATIENT
  Age: 65 Year
  Sex: Male

DRUGS (3)
  1. SULFUR HEXAFLUORIDE [Suspect]
     Active Substance: SULFUR HEXAFLUORIDE
     Indication: Echocardiogram
     Dosage: 1.2 ML, SINGLE
     Route: 040
     Dates: start: 20250513, end: 20250513
  2. SULFUR HEXAFLUORIDE [Suspect]
     Active Substance: SULFUR HEXAFLUORIDE
     Indication: Echocardiogram
     Dosage: 1.2 ML, SINGLE
     Route: 040
     Dates: start: 20250513, end: 20250513
  3. SULFUR HEXAFLUORIDE [Suspect]
     Active Substance: SULFUR HEXAFLUORIDE
     Indication: Echocardiogram
     Dosage: 1.2 ML, SINGLE
     Route: 040
     Dates: start: 20250513, end: 20250513

REACTIONS (3)
  - Pulse absent [Recovering/Resolving]
  - Unresponsive to stimuli [Recovering/Resolving]
  - Retching [Recovering/Resolving]

NARRATIVE: CASE EVENT DATE: 20250513
